FAERS Safety Report 8314723 (Version 3)
Quarter: 2018Q2

REPORT INFORMATION
  Report Type: Spontaneous
  Country: ES (occurrence: ES)
  Receive Date: 20111229
  Receipt Date: 20180404
  Transmission Date: 20180711
  Serious: Yes (Hospitalization, Other)
  Sender: FDA-Public Use
  Company Number: ES-RANBAXY-2011RR-51288

PATIENT
  Age: 35 Year
  Sex: Male

DRUGS (9)
  1. CETIRIZINE [Suspect]
     Active Substance: CETIRIZINE HYDROCHLORIDE
     Indication: URTICARIA
     Dosage: UNK
     Route: 048
  2. PIROXICAM. [Suspect]
     Active Substance: PIROXICAM
     Indication: ALLERGY TEST
     Dosage: 10 MG, UNK
     Route: 048
  3. ETORICOXIB [Concomitant]
     Active Substance: ETORICOXIB
     Indication: ALLERGY TEST
     Dosage: UNK
     Route: 048
  4. CETIRIZINE [Suspect]
     Active Substance: CETIRIZINE HYDROCHLORIDE
     Indication: ANGIOEDEMA
  5. PIROXICAM. [Suspect]
     Active Substance: PIROXICAM
     Indication: ALLERGY TEST
     Dosage: 20 MG, UNK
     Route: 048
  6. PARACETAMOL [Concomitant]
     Active Substance: ACETAMINOPHEN
     Indication: ALLERGY TEST
     Dosage: UNK
     Route: 048
  7. LORATADINE. [Suspect]
     Active Substance: LORATADINE
     Indication: ALLERGY TEST
     Dosage: 5 MG, UNK
     Route: 048
  8. LORATADINE. [Suspect]
     Active Substance: LORATADINE
     Indication: ALLERGY TEST
     Dosage: 10 MG, UNK
     Route: 048
  9. FEXOFENADINE [Concomitant]
     Active Substance: FEXOFENADINE\FEXOFENADINE HYDROCHLORIDE
     Indication: ALLERGY TEST
     Dosage: 180 MG, UNK
     Route: 048

REACTIONS (2)
  - Urticaria [Recovered/Resolved]
  - Angioedema [Recovered/Resolved]
